FAERS Safety Report 23957681 (Version 2)
Quarter: 2024Q3

REPORT INFORMATION
  Report Type: Spontaneous
  Country: US (occurrence: US)
  Receive Date: 20240610
  Receipt Date: 20240708
  Transmission Date: 20241017
  Serious: No
  Sender: MYLAN
  Company Number: US-MYLANLABS-2024M1044916

PATIENT
  Sex: Female
  Weight: 45.35 kg

DRUGS (1)
  1. TYRVAYA [Suspect]
     Active Substance: VARENICLINE TARTRATE
     Indication: Dry eye
     Dosage: 0.03 MILLIGRAM, BID(EVERY 12 HOURS)
     Route: 045

REACTIONS (4)
  - Vision blurred [Recovered/Resolved]
  - Eye discharge [Unknown]
  - Therapeutic response unexpected [Unknown]
  - Product delivery mechanism issue [Unknown]
